FAERS Safety Report 4504689-8 (Version None)
Quarter: 2004Q3

REPORT INFORMATION
  Report Type: 
  Country: None (occurrence: None)
  Receive Date: 20040927
  Receipt Date: 20040811
  Transmission Date: 20050211
  Serious: No
  Sender: FDA-Public Use
  Company Number: USA040773116

PATIENT
  Age: 22 Year
  Sex: Male
  Weight: 80 kg

DRUGS (1)
  1. STRATTERA [Suspect]
     Indication: ATTENTION DEFICIT/HYPERACTIVITY DISORDER
     Dosage: 40 MG IN THE EVENING

REACTIONS (19)
  - ABDOMINAL PAIN [None]
  - ABNORMAL DREAMS [None]
  - COLONIC HAEMORRHAGE [None]
  - CONSTIPATION [None]
  - DECREASED APPETITE [None]
  - DIZZINESS [None]
  - DRY MOUTH [None]
  - ERECTILE DYSFUNCTION [None]
  - HEADACHE [None]
  - HYPERHIDROSIS [None]
  - IRRITABILITY [None]
  - MIDDLE INSOMNIA [None]
  - MOOD SWINGS [None]
  - NAUSEA [None]
  - PALPITATIONS [None]
  - RESTLESSNESS [None]
  - URINARY RETENTION [None]
  - WEIGHT DECREASED [None]
  - WEIGHT INCREASED [None]
